FAERS Safety Report 5841751-1 (Version None)
Quarter: 2008Q3

REPORT INFORMATION
  Report Type: 
  Country: None (occurrence: None)
  Receive Date: 20080811
  Receipt Date: 20080811
  Transmission Date: 20090109
  Serious: Yes (Life-Threatening, Disabling)
  Sender: FDA-Public Use
  Company Number: None

PATIENT
  Age: 16 Year
  Sex: Female
  Weight: 76 kg

DRUGS (1)
  1. PEG-ASPARGINASE  750 UNITS/ML  RHONE-POULENC RORER. [Suspect]
     Indication: LEUKAEMIA
     Dosage: 1492.7 UNITS ONCE IV
     Route: 042
     Dates: start: 20080611, end: 20080611

REACTIONS (5)
  - AGITATION [None]
  - ANAPHYLACTIC REACTION [None]
  - HYPOTENSION [None]
  - STRIDOR [None]
  - VOMITING [None]
